FAERS Safety Report 7104414-0 (Version None)
Quarter: 2010Q4

REPORT INFORMATION
  Report Type: 
  Country: None (occurrence: None)
  Receive Date: 20101116
  Receipt Date: 20101026
  Transmission Date: 20110411
  Serious: Yes (Hospitalization)
  Sender: FDA-Public Use
  Company Number: CO-AMGEN-COLCT2010002747

PATIENT

DRUGS (4)
  1. ETANERCEPT [Suspect]
     Indication: RHEUMATOID ARTHRITIS
     Dosage: 25 MG, QWK
     Route: 058
     Dates: start: 20070101, end: 20100901
  2. METHOTREXATE SODIUM [Suspect]
     Indication: RHEUMATOID ARTHRITIS
     Dosage: 5 MG/5 TABLETS X WEEK
     Route: 048
     Dates: start: 19950101
  3. PREDNISOLONE [Concomitant]
     Dosage: NOT COMMUNICATED
     Dates: start: 20050101
  4. DICLOFENAC SODIUM [Concomitant]
     Dosage: NOT COMMUNICATED
     Dates: start: 19920101

REACTIONS (2)
  - JOINT DESTRUCTION [None]
  - JOINT DISLOCATION [None]
